FAERS Safety Report 21005474 (Version 1)
Quarter: 2022Q2

REPORT INFORMATION
  Report Type: Spontaneous
  Country: US (occurrence: None)
  Receive Date: 20220624
  Receipt Date: 20220624
  Transmission Date: 20220721
  Serious: No
  Sender: FDA-Public Use
  Company Number: None

PATIENT
  Age: 86 Year
  Sex: Female
  Weight: 53.07 kg

DRUGS (18)
  1. DEFERASIROX [Suspect]
     Active Substance: DEFERASIROX
     Indication: Blood test abnormal
     Dosage: FREQUENCY : DAILY;?
     Route: 048
  2. ALBUTEROL [Concomitant]
  3. AMLODIPINE [Concomitant]
  4. ASPIRIN [Concomitant]
  5. ATORVASTATIN [Concomitant]
  6. BENAZEPRIL [Concomitant]
  7. BIOTIN [Concomitant]
  8. CALCIUM 600 [Concomitant]
  9. CLOPIDOGREL [Concomitant]
  10. FAMOTIDINE [Concomitant]
  11. FOLIC ACID [Concomitant]
  12. GLIMEPIRIDE [Concomitant]
  13. LEXAPRO [Concomitant]
  14. METOPROLOL [Concomitant]
  15. TOUJEO [Concomitant]
  16. TRELEGY [Concomitant]
  17. VENTOLIN [Concomitant]
  18. ZOLEDRONIC ACID [Concomitant]

REACTIONS (2)
  - Disease progression [None]
  - General physical health deterioration [None]
